APPROVED DRUG PRODUCT: NORETHIN 1/50M-28
Active Ingredient: MESTRANOL; NORETHINDRONE
Strength: 0.05MG;1MG
Dosage Form/Route: TABLET;ORAL-28
Application: A071540 | Product #001
Applicant: HERITAGE PHARMA LABS INC
Approved: Apr 12, 1988 | RLD: No | RS: No | Type: DISCN